FAERS Safety Report 9767696 (Version 1)
Quarter: 2013Q4

REPORT INFORMATION
  Report Type: Spontaneous
  Country: US (occurrence: US)
  Receive Date: 20131217
  Receipt Date: 20131217
  Transmission Date: 20140711
  Serious: No
  Sender: FDA-Public Use
  Company Number: US-PFIZER INC-2013359045

PATIENT
  Age: 47 Year
  Sex: Female
  Weight: 76.19 kg

DRUGS (3)
  1. LYRICA [Suspect]
     Indication: FIBROMYALGIA
     Dosage: 50 MG, DAILY
     Dates: start: 201308
  2. TOPAMAX [Suspect]
     Indication: MIGRAINE
     Dosage: 50 MG, DAILY
     Dates: start: 2011
  3. LIPITOR [Concomitant]
     Dosage: UNK

REACTIONS (1)
  - Weight increased [Unknown]
